FAERS Safety Report 19084924 (Version 1)
Quarter: 2021Q2

REPORT INFORMATION
  Report Type: Spontaneous
  Country: HR (occurrence: HR)
  Receive Date: 20210401
  Receipt Date: 20210401
  Transmission Date: 20210717
  Serious: Yes (Other)
  Sender: FDA-Public Use
  Company Number: HR-PFIZER INC-2021341342

PATIENT
  Age: 12 Year
  Sex: Male

DRUGS (4)
  1. PLIVIT C [Suspect]
     Active Substance: ASCORBIC ACID
     Dosage: UNK
     Route: 048
     Dates: start: 20210210, end: 20210210
  2. BYOL COR [Suspect]
     Active Substance: BISOPROLOL FUMARATE
     Dosage: 10 MG, 1X/DAY
     Route: 048
     Dates: start: 20210210, end: 20210210
  3. MISAR [ALPRAZOLAM] [Suspect]
     Active Substance: ALPRAZOLAM
     Dosage: 5 MG, 1X/DAY
     Route: 048
     Dates: start: 20210210, end: 20210210
  4. XANAX [Suspect]
     Active Substance: ALPRAZOLAM
     Dosage: 5 MG, 1X/DAY
     Route: 048
     Dates: start: 20210210, end: 20210210

REACTIONS (4)
  - Vomiting [Unknown]
  - Somnolence [Unknown]
  - Intentional overdose [Unknown]
  - Suicide attempt [Unknown]

NARRATIVE: CASE EVENT DATE: 20210210
